FAERS Safety Report 10241968 (Version 3)
Quarter: 2014Q3

REPORT INFORMATION
  Report Type: Spontaneous
  Country: US (occurrence: US)
  Receive Date: 20140617
  Receipt Date: 20140904
  Transmission Date: 20150326
  Serious: Yes (Death, Other)
  Sender: FDA-Public Use
  Company Number: US-ASTELLAS-2014US006847

PATIENT
  Sex: Male

DRUGS (1)
  1. XTANDI [Suspect]
     Active Substance: ENZALUTAMIDE
     Indication: PROSTATE CANCER STAGE IV
     Route: 048

REACTIONS (5)
  - Malignant neoplasm progression [Fatal]
  - General physical health deterioration [Unknown]
  - Back pain [Unknown]
  - Headache [Unknown]
  - Pain in extremity [Unknown]
